FAERS Safety Report 14076566 (Version 1)
Quarter: 2017Q4

REPORT INFORMATION
  Report Type: Report from Study
  Country: JP (occurrence: JP)
  Receive Date: 20171011
  Receipt Date: 20171011
  Transmission Date: 20180321
  Serious: Yes (Hospitalization, Other)
  Sender: FDA-Public Use
  Company Number: JP-BRISTOL-MYERS SQUIBB COMPANY-B035271

PATIENT
  Age: 46 Year
  Sex: Male

DRUGS (34)
  1. STAVUDINE. [Suspect]
     Active Substance: STAVUDINE
     Indication: HIV INFECTION CDC GROUP IV SUBGROUP C1
     Dosage: 60 MG, QD
     Route: 048
     Dates: start: 19970804, end: 20060510
  2. HIVID [Concomitant]
     Active Substance: ZALCITABINE
     Indication: PRODUCT USED FOR UNKNOWN INDICATION
     Dosage: 2.2 MG, QD
     Route: 048
     Dates: start: 19970331, end: 19970803
  3. KLARICID [Concomitant]
     Active Substance: CLARITHROMYCIN
     Indication: PRODUCT USED FOR UNKNOWN INDICATION
     Dosage: 400 MG, QD
     Route: 048
     Dates: start: 19980903, end: 19980907
  4. INVIRASE [Concomitant]
     Active Substance: SAQUINAVIR MESYLATE
     Indication: HIV INFECTION CDC GROUP IV SUBGROUP C1
     Dosage: 800 MG, QD
     Route: 048
     Dates: start: 20000218, end: 20000331
  5. NORVIR [Concomitant]
     Active Substance: RITONAVIR
     Indication: HIV INFECTION CDC GROUP IV SUBGROUP C1
     Dosage: 400 MG: 2/18/00-2/19/00, 600 MG: 2/20/00-2/22/00, 800 MG: 2/23/00-3/31/00.
     Route: 048
     Dates: start: 20000218
  6. ZIAGEN [Concomitant]
     Active Substance: ABACAVIR SULFATE
     Indication: PRODUCT USED FOR UNKNOWN INDICATION
     Dosage: 600 MG, QD
     Route: 048
     Dates: start: 20000218, end: 20040216
  7. STOCRIN [Concomitant]
     Active Substance: EFAVIRENZ
     Indication: PRODUCT USED FOR UNKNOWN INDICATION
     Dosage: UNK
     Route: 048
     Dates: start: 200011, end: 20040131
  8. EPIVIR [Suspect]
     Active Substance: LAMIVUDINE
     Indication: HIV INFECTION CDC GROUP IV SUBGROUP C1
     Dosage: RESTARTED ON 16-FEB-2004 TO 10-MAY-2006.
     Route: 048
     Dates: start: 19970331, end: 20000217
  9. BUPRENORPHINE HCL [Concomitant]
     Active Substance: BUPRENORPHINE HYDROCHLORIDE
     Indication: PRODUCT USED FOR UNKNOWN INDICATION
     Dosage: .2 MG, QD
     Route: 054
     Dates: start: 19970828, end: 19970901
  10. FUNGIZONE OS [Concomitant]
     Indication: PRODUCT USED FOR UNKNOWN INDICATION
     Dosage: 24 ML, QD
     Route: 048
     Dates: start: 19960622, end: 19961201
  11. RESPLEN [Concomitant]
     Active Substance: EPRAZINONE
     Indication: PRODUCT USED FOR UNKNOWN INDICATION
     Dosage: 2 UNK, QD
     Route: 048
     Dates: start: 19980903, end: 19980907
  12. VIRACEPT [Concomitant]
     Active Substance: NELFINAVIR MESYLATE
     Indication: HIV INFECTION CDC GROUP IV SUBGROUP C1
     Dosage: 2.5 G, QD
     Route: 048
     Dates: start: 19990129, end: 20000217
  13. ZOVIRAX [Concomitant]
     Active Substance: ACYCLOVIR
     Indication: PRODUCT USED FOR UNKNOWN INDICATION
     Dosage: 1.6 G 12/2/97-8/10/97, 600 MG 8/11/97-11/12/97, 2.2 MG 11/13/97-2/4/98.
     Route: 048
     Dates: start: 19961202, end: 19980204
  14. CRIXIVAN [Suspect]
     Active Substance: INDINAVIR SULFATE
     Indication: HIV INFECTION CDC GROUP IV SUBGROUP C1
     Dosage: 2.4 G, QD
     Route: 048
     Dates: start: 19970804, end: 19970918
  15. BUTORPHANOL TARTRATE. [Concomitant]
     Active Substance: BUTORPHANOL TARTRATE
     Indication: PRODUCT USED FOR UNKNOWN INDICATION
     Dosage: THERAPY DATES: 21-AUG-1997, 23-AUG-1997 AND 11-SEPT-1997.
     Route: 030
     Dates: start: 19970821
  16. VITAMINS [Concomitant]
     Active Substance: VITAMINS
     Indication: PRODUCT USED FOR UNKNOWN INDICATION
     Dosage: UNK
     Route: 048
  17. VIDEX [Concomitant]
     Active Substance: DIDANOSINE
     Indication: PRODUCT USED FOR UNKNOWN INDICATION
     Dosage: 200 MG, QD
     Route: 048
     Dates: start: 19960706, end: 19970330
  18. SOLITA-T NO. 3 [Concomitant]
     Indication: PRODUCT USED FOR UNKNOWN INDICATION
     Dosage: 1.5 L, QD
     Route: 065
     Dates: start: 19970823, end: 19970905
  19. FOLIC ACID. [Concomitant]
     Active Substance: FOLIC ACID
     Indication: PRODUCT USED FOR UNKNOWN INDICATION
     Dosage: 10 MG, QD
     Route: 048
     Dates: start: 19980403, end: 19991227
  20. XYLOCAINE [Concomitant]
     Active Substance: LIDOCAINE HYDROCHLORIDE
     Indication: PRODUCT USED FOR UNKNOWN INDICATION
     Dosage: THERAPY:18-AUG-1997,27-AUG-1997,05-SEP-1997,10-SEP-1997,17-SEP-1997,24-SEP-1997,08OCT1997,23OCT1997.
     Route: 014
     Dates: start: 19970818
  21. VIRAMUNE [Concomitant]
     Active Substance: NEVIRAPINE
     Indication: PRODUCT USED FOR UNKNOWN INDICATION
     Dosage: UNK
     Route: 048
     Dates: start: 20040216, end: 20060510
  22. PROCHLORPERAZINE. [Concomitant]
     Active Substance: PROCHLORPERAZINE
     Indication: PRODUCT USED FOR UNKNOWN INDICATION
     Dosage: UNK
     Route: 048
     Dates: start: 19970808
  23. MAGNESIUM SULFATE. [Concomitant]
     Active Substance: MAGNESIUM SULFATE
     Indication: PRODUCT USED FOR UNKNOWN INDICATION
     Dosage: 3.9 G, UNK
     Route: 048
     Dates: start: 19970808
  24. DIFLUCAN [Concomitant]
     Active Substance: FLUCONAZOLE
     Indication: PRODUCT USED FOR UNKNOWN INDICATION
     Dosage: 400 MG, QD
     Route: 048
     Dates: start: 19960930, end: 19971112
  25. BAKTAR [Concomitant]
     Active Substance: SULFAMETHOXAZOLE\TRIMETHOPRIM
     Indication: PRODUCT USED FOR UNKNOWN INDICATION
     Dosage: 2 UNK, QD
     Route: 048
     Dates: start: 19960520, end: 19991227
  26. HYALURONIC ACID [Concomitant]
     Active Substance: HYALURONIC ACID
     Indication: PRODUCT USED FOR UNKNOWN INDICATION
     Dosage: GIVEN ON 8/17/97 AND 8/27/97.
     Route: 048
     Dates: start: 19970818, end: 19970827
  27. CO-DYDRAMOL [Concomitant]
     Active Substance: ACETAMINOPHEN\DIHYDROCODEINE
     Indication: ABDOMINAL PAIN
     Dosage: 2 UNK, QD
     Route: 065
     Dates: start: 20000530
  28. VOLTAREN [Concomitant]
     Active Substance: DICLOFENAC SODIUM
     Indication: PRODUCT USED FOR UNKNOWN INDICATION
     Dosage: 50 MG, QD
     Route: 054
     Dates: start: 19970814, end: 19971127
  29. BENDROFLUAZIDE [Concomitant]
     Active Substance: BENDROFLUMETHIAZIDE
     Indication: ASCITES
     Dosage: 5 MG, QD
     Route: 065
     Dates: start: 20000530
  30. CRIXIVAN [Suspect]
     Active Substance: INDINAVIR SULFATE
     Indication: PRODUCT USED FOR UNKNOWN INDICATION
     Dosage: 1.8 G, QD
     Route: 048
     Dates: start: 19970921, end: 19990128
  31. RETROVIR [Concomitant]
     Active Substance: ZIDOVUDINE
     Indication: PRODUCT USED FOR UNKNOWN INDICATION
     Dosage: UNK
     Route: 048
     Dates: start: 19950301, end: 19950430
  32. AMICALIQ [Concomitant]
     Indication: PRODUCT USED FOR UNKNOWN INDICATION
     Dosage: UNK
     Route: 065
     Dates: start: 19970815, end: 19970819
  33. BUSCOPAN [Concomitant]
     Active Substance: BUTYLSCOPOLAMINE BROMIDE
     Indication: PRODUCT USED FOR UNKNOWN INDICATION
     Dosage: 10 MG, QD
     Route: 048
     Dates: start: 19970912, end: 19971010
  34. NEUROTROPIN                        /00398601/ [Concomitant]
     Active Substance: CYANOCOBALAMIN\LIDOCAINE HYDROCHLORIDE\PYRIDOXINE HYDROCHLORIDE\THIAMINE HYDROCHLORIDE
     Indication: PRODUCT USED FOR UNKNOWN INDICATION
     Dosage: THERAPY DATES: 05-SEP-1997, 10-SEP-1997, 17-SEP-1997, 24-SEP-1997, 08-OCT-1997, 23-OCT-1997.
     Route: 014
     Dates: start: 19970905

REACTIONS (14)
  - Muscular weakness [Not Recovered/Not Resolved]
  - Decreased appetite [Unknown]
  - Nausea [Unknown]
  - Decreased appetite [Unknown]
  - Back pain [Unknown]
  - Abdominal pain [Unknown]
  - Musculoskeletal pain [Unknown]
  - Gait inability [Unknown]
  - Hypoaesthesia [Unknown]
  - Fatigue [Not Recovered/Not Resolved]
  - Diarrhoea [Unknown]
  - Lipoatrophy [Not Recovered/Not Resolved]
  - Lymphadenopathy [Unknown]
  - Malaise [Unknown]

NARRATIVE: CASE EVENT DATE: 19970804
